FAERS Safety Report 21517415 (Version 1)
Quarter: 2022Q4

REPORT INFORMATION
  Report Type: Spontaneous
  Country: CN (occurrence: None)
  Receive Date: 20221028
  Receipt Date: 20221028
  Transmission Date: 20230112
  Serious: Yes (Other)
  Sender: FDA-Public Use
  Company Number: CN-ROCHE-3205054

PATIENT
  Age: 50 Year
  Sex: Female

DRUGS (5)
  1. TRASTUZUMAB [Suspect]
     Active Substance: TRASTUZUMAB
     Indication: Invasive breast carcinoma
     Dosage: THP
     Route: 065
     Dates: start: 202004
  2. PERTUZUMAB [Suspect]
     Active Substance: PERTUZUMAB
     Indication: Invasive breast carcinoma
     Dosage: THP
     Route: 065
     Dates: start: 202004
  3. PYROTINIB [Suspect]
     Active Substance: PYROTINIB
     Indication: Invasive breast carcinoma
     Route: 048
     Dates: start: 20220711
  4. ADO-TRASTUZUMAB EMTANSINE [Concomitant]
     Active Substance: ADO-TRASTUZUMAB EMTANSINE
     Indication: Invasive breast carcinoma
     Dates: start: 20220730
  5. DOCETAXEL [Concomitant]
     Active Substance: DOCETAXEL
     Indication: Invasive breast carcinoma
     Dosage: THP
     Dates: start: 202004

REACTIONS (2)
  - Diarrhoea [Unknown]
  - Vomiting [Unknown]
